FAERS Safety Report 9097339 (Version 2)
Quarter: 2013Q1

REPORT INFORMATION
  Report Type: Spontaneous
  Country: NZ (occurrence: NZ)
  Receive Date: 20130212
  Receipt Date: 20130321
  Transmission Date: 20140127
  Serious: Yes (Other)
  Sender: FDA-Public Use
  Company Number: NZ-PFIZER INC-2013053548

PATIENT
  Sex: Male

DRUGS (1)
  1. EFEXOR XR [Suspect]
     Dosage: 150 MG, UNK
     Route: 048

REACTIONS (1)
  - Gastric disorder [Unknown]
